FAERS Safety Report 19167063 (Version 2)
Quarter: 2021Q2

REPORT INFORMATION
  Report Type: Spontaneous
  Country: CH (occurrence: CH)
  Receive Date: 20210421
  Receipt Date: 20210423
  Transmission Date: 20210717
  Serious: Yes (Other)
  Sender: FDA-Public Use
  Company Number: CH-ASTRAZENECA-2021A332521

PATIENT
  Age: 62 Year
  Sex: Male

DRUGS (2)
  1. SEROQUEL [Suspect]
     Active Substance: QUETIAPINE FUMARATE
     Route: 048
     Dates: start: 2016
  2. SEROQUEL [Suspect]
     Active Substance: QUETIAPINE FUMARATE
     Route: 048
     Dates: start: 2016

REACTIONS (1)
  - Postural tremor [Not Recovered/Not Resolved]

NARRATIVE: CASE EVENT DATE: 2018
